FAERS Safety Report 6901239-3 (Version None)
Quarter: 2010Q3

REPORT INFORMATION
  Report Type: 
  Country: None (occurrence: None)
  Receive Date: 20100803
  Receipt Date: 20100701
  Transmission Date: 20110219
  Serious: No
  Sender: FDA-Public Use
  Company Number: US-BAYER-201017798BCC

PATIENT
  Age: 28 Year
  Sex: Male
  Weight: 66 kg

DRUGS (1)
  1. ALEVE [Suspect]
     Indication: NECK PAIN
     Dosage: AS USED: 220/660 MG  UNIT DOSE: 220 MG
     Route: 048
     Dates: start: 20100701

REACTIONS (1)
  - NECK PAIN [None]
